FAERS Safety Report 18226473 (Version 3)
Quarter: 2020Q4

REPORT INFORMATION
  Report Type: Report from Study
  Country: US (occurrence: US)
  Receive Date: 20200903
  Receipt Date: 20201223
  Transmission Date: 20210113
  Serious: Yes (Death, Hospitalization)
  Sender: FDA-Public Use
  Company Number: US-ROCHE-2664036

PATIENT
  Age: 79 Year
  Sex: Female
  Weight: 58.5 kg

DRUGS (19)
  1. IMODIUM [Concomitant]
     Active Substance: LOPERAMIDE HYDROCHLORIDE
     Dosage: AS NEEDED
     Route: 048
  2. LEVOTHYROXINE. [Concomitant]
     Active Substance: LEVOTHYROXINE
     Route: 048
  3. OMEPRAZOLE. [Concomitant]
     Active Substance: OMEPRAZOLE
     Route: 048
  4. MIRALAX [Concomitant]
     Active Substance: POLYETHYLENE GLYCOL 3350
     Route: 048
  5. MINOCYCLINE [Concomitant]
     Active Substance: MINOCYCLINE HYDROCHLORIDE
     Dosage: 1 CAP(S) ORALLY 2 TIMES A DAY X 45 DAYS
     Route: 048
  6. COLACE [Concomitant]
     Active Substance: DOCUSATE SODIUM
     Dosage: 1 CAP(S) ORALLY ONCE A DAY
     Route: 048
  7. ALCLOMETASONE [Concomitant]
     Active Substance: ALCLOMETASONE
     Dosage: APPLY TOPICALLY TO FACE, CHEST, AND BACK 2 TIMES A DAY X 30 DAYS
     Route: 061
  8. MAGNESIUM OXIDE. [Concomitant]
     Active Substance: MAGNESIUM OXIDE
     Dosage: 1 TAB(S) ORALLY ONCE A DAY
     Route: 048
  9. POTASSIUM CHLORIDE. [Concomitant]
     Active Substance: POTASSIUM CHLORIDE
     Route: 048
  10. VITAMIN B12 [Concomitant]
     Active Substance: CYANOCOBALAMIN
     Dosage: 1 TAB(S) ORALLY EVERY OTHER DAY
     Route: 048
  11. DIPHENOXYLATE/ATROPINE [Concomitant]
     Active Substance: ATROPINE\DIPHENOXYLATE
     Dosage: 1 TAB(S) ORALLY 4 TIMES A DAY X 30 DAYS  3-4 TIMES A DAY AS NEEDED MDD:8 TABS
     Route: 048
  12. ACETAMINOPHEN. [Concomitant]
     Active Substance: ACETAMINOPHEN
     Dosage: 2 CAP(S) ORALLY EVERY 6 HOURS, AS NEEDED
     Route: 048
  13. CALCIUM CARBONATE. [Concomitant]
     Active Substance: CALCIUM CARBONATE
     Route: 048
  14. DEMECLOCYCLINE [Concomitant]
     Active Substance: DEMECLOCYCLINE
     Route: 048
  15. OXYCODONE [Concomitant]
     Active Substance: OXYCODONE
     Indication: PAIN
     Dosage: AS NEEDED-SEVERE PAIN  MDD: 40 MG
     Route: 048
  16. COBIMETINIB. [Suspect]
     Active Substance: COBIMETINIB
     Indication: HISTIOCYTIC SARCOMA
     Route: 048
     Dates: start: 20200805, end: 20200818
  17. SODIUM CHLORIDE. [Concomitant]
     Active Substance: SODIUM CHLORIDE
     Route: 048
  18. PROBIOTICA [Concomitant]
     Active Substance: PROBIOTICS NOS
     Route: 048
  19. VITAMIN D3 [Concomitant]
     Active Substance: CHOLECALCIFEROL
     Route: 048

REACTIONS (7)
  - Pain [Unknown]
  - Death [Fatal]
  - Hyponatraemia [Unknown]
  - Bone neoplasm [Unknown]
  - Oedema peripheral [Unknown]
  - Peripheral swelling [Unknown]
  - Pain in extremity [Unknown]

NARRATIVE: CASE EVENT DATE: 20200819
